FAERS Safety Report 5950341-1 (Version None)
Quarter: 2008Q4

REPORT INFORMATION
  Report Type: 
  Country: None (occurrence: None)
  Receive Date: 20081112
  Receipt Date: 20081104
  Transmission Date: 20090506
  Serious: Yes (Other)
  Sender: FDA-Public Use
  Company Number: PHHY2008US27166

PATIENT

DRUGS (1)
  1. EXJADE [Suspect]
     Dosage: 30 MG, UNK

REACTIONS (1)
  - UPPER GASTROINTESTINAL HAEMORRHAGE [None]
